FAERS Safety Report 5007317-0 (Version None)
Quarter: 2006Q2

REPORT INFORMATION
  Report Type: 
  Country: None (occurrence: None)
  Receive Date: 20060519
  Receipt Date: 20060519
  Transmission Date: 20061013
  Serious: Yes (Other)
  Sender: FDA-Public Use
  Company Number: None

PATIENT
  Age: 64 Year
  Sex: Female
  Weight: 54.8852 kg

DRUGS (12)
  1. LEVAQUIN [Suspect]
     Indication: PNEUMONIA
     Dosage: 750 MG DAILY
     Dates: start: 20060502, end: 20060510
  2. ALBUTEROL [Concomitant]
  3. FOSAMAX [Concomitant]
  4. ASPIRIN [Concomitant]
  5. MULTI-VITAMIN [Concomitant]
  6. PREMARIN [Concomitant]
  7. ADVAIR DISKUS 100/50 [Concomitant]
  8. LEVOXYL [Concomitant]
  9. HYZAAR [Concomitant]
  10. NYSTATIN [Concomitant]
  11. QUININE SULFATE [Concomitant]
  12. SPIRIVA [Concomitant]

REACTIONS (1)
  - TENDONITIS [None]
